FAERS Safety Report 18553674 (Version 1)
Quarter: 2020Q4

REPORT INFORMATION
  Report Type: Spontaneous
  Country: HU (occurrence: HU)
  Receive Date: 20201127
  Receipt Date: 20201127
  Transmission Date: 20210114
  Serious: Yes (Other)
  Sender: FDA-Public Use
  Company Number: NVSC2020HU313793

PATIENT
  Sex: Female

DRUGS (16)
  1. EPIRUBICIN [Suspect]
     Active Substance: EPIRUBICIN
     Indication: PIK3CA-ACTIVATED MUTATION
  2. IBANDRONATE SODIUM. [Suspect]
     Active Substance: IBANDRONATE SODIUM
     Indication: BREAST CANCER METASTATIC
     Dosage: UNK
     Route: 065
  3. EXEMESTANE. [Suspect]
     Active Substance: EXEMESTANE
     Indication: BREAST CANCER METASTATIC
  4. EVEROLIMUS. [Suspect]
     Active Substance: EVEROLIMUS
     Indication: PIK3CA-ACTIVATED MUTATION
  5. TAMOXIFEN [Suspect]
     Active Substance: TAMOXIFEN
     Indication: PIK3CA-ACTIVATED MUTATION
  6. CYCLOPHOSPHAMIDE. [Suspect]
     Active Substance: CYCLOPHOSPHAMIDE
     Indication: PIK3CA-ACTIVATED MUTATION
  7. EXEMESTANE. [Suspect]
     Active Substance: EXEMESTANE
     Indication: PIK3CA-ACTIVATED MUTATION
     Route: 065
  8. EVEROLIMUS. [Suspect]
     Active Substance: EVEROLIMUS
     Indication: BREAST CANCER METASTATIC
     Dosage: UNK
     Route: 065
  9. TAMOXIFEN [Suspect]
     Active Substance: TAMOXIFEN
     Indication: BREAST CANCER METASTATIC
     Dosage: UNK
     Route: 065
  10. FULVESTRANT. [Suspect]
     Active Substance: FULVESTRANT
     Indication: PIK3CA-ACTIVATED MUTATION
  11. FULVESTRANT. [Suspect]
     Active Substance: FULVESTRANT
     Indication: BREAST CANCER METASTATIC
     Dosage: UNK
     Route: 065
  12. PACLITAXEL. [Suspect]
     Active Substance: PACLITAXEL
     Indication: PIK3CA-ACTIVATED MUTATION
  13. CYCLOPHOSPHAMIDE. [Suspect]
     Active Substance: CYCLOPHOSPHAMIDE
     Indication: BREAST CANCER METASTATIC
     Dosage: UNK(4 CYCLE)
     Route: 065
  14. IBANDRONATE SODIUM. [Suspect]
     Active Substance: IBANDRONATE SODIUM
     Indication: PIK3CA-ACTIVATED MUTATION
  15. EPIRUBICIN [Suspect]
     Active Substance: EPIRUBICIN
     Indication: BREAST CANCER METASTATIC
     Dosage: UNK(4 CYCLE)
     Route: 065
  16. PACLITAXEL. [Suspect]
     Active Substance: PACLITAXEL
     Indication: BREAST CANCER METASTATIC
     Dosage: UNK(4 CYCLE)
     Route: 065

REACTIONS (4)
  - Cardiomyopathy [Unknown]
  - Malignant neoplasm progression [Unknown]
  - Metastases to bone [Unknown]
  - Breast cancer metastatic [Unknown]
